FAERS Safety Report 20317341 (Version 1)
Quarter: 2022Q1

REPORT INFORMATION
  Report Type: Spontaneous
  Country: CA (occurrence: CA)
  Receive Date: 20220110
  Receipt Date: 20220110
  Transmission Date: 20220423
  Serious: Yes (Other)
  Sender: FDA-Public Use
  Company Number: None

PATIENT
  Age: 50 Year
  Sex: Male

DRUGS (4)
  1. METHOTREXATE [Suspect]
     Active Substance: METHOTREXATE
     Indication: Product used for unknown indication
     Route: 065
  2. CYCLOBENZAPRINE [Concomitant]
     Active Substance: CYCLOBENZAPRINE
  3. CELECOXIB [Concomitant]
     Active Substance: CELECOXIB
  4. OLANZAPINE [Concomitant]
     Active Substance: OLANZAPINE
     Dosage: AS REQUIRED

REACTIONS (1)
  - Ankylosing spondylitis [Unknown]
